FAERS Safety Report 6850751-4 (Version None)
Quarter: 2010Q3

REPORT INFORMATION
  Report Type: 
  Country: None (occurrence: None)
  Receive Date: 20100716
  Receipt Date: 20100715
  Transmission Date: 20110219
  Serious: Yes (Hospitalization)
  Sender: FDA-Public Use
  Company Number: US-AMGEN-TCS413981

PATIENT
  Sex: Female

DRUGS (6)
  1. ENBREL [Suspect]
     Indication: RHEUMATOID ARTHRITIS
     Route: 058
     Dates: start: 20100422, end: 20100519
  2. CORTICOSTEROIDS [Concomitant]
     Route: 048
  3. DEPO-MEDROL [Concomitant]
     Route: 030
  4. PREDNISONE [Concomitant]
     Dates: start: 20100401
  5. PRILOSEC [Concomitant]
  6. ETHINYL ESTRADIOL AND NORETHINDRONE [Concomitant]

REACTIONS (5)
  - ANGIOEDEMA [None]
  - DRUG INEFFECTIVE [None]
  - DYSPHONIA [None]
  - LARYNGEAL OEDEMA [None]
  - PHARYNGITIS STREPTOCOCCAL [None]
